FAERS Safety Report 6038009-7 (Version None)
Quarter: 2009Q1

REPORT INFORMATION
  Report Type: 
  Country: None (occurrence: None)
  Receive Date: 20090113
  Receipt Date: 20090113
  Transmission Date: 20090719
  Serious: Yes (Other)
  Sender: FDA-Public Use
  Company Number: None

PATIENT
  Age: 51 Year
  Sex: Female
  Weight: 106.1417 kg

DRUGS (2)
  1. LYRICA [Suspect]
     Indication: BACK PAIN
     Dosage: ONE THRESS TIME PER DAY PO
     Route: 048
     Dates: start: 20070129, end: 20070329
  2. LYRICA [Suspect]
     Indication: PAIN IN EXTREMITY
     Dosage: ONE THRESS TIME PER DAY PO
     Route: 048
     Dates: start: 20070129, end: 20070329

REACTIONS (3)
  - MALAISE [None]
  - PITTING OEDEMA [None]
  - WHEEZING [None]
